FAERS Safety Report 9962442 (Version 1)
Quarter: 2014Q1

REPORT INFORMATION
  Report Type: Report from Study
  Country: US (occurrence: US)
  Receive Date: 20140305
  Receipt Date: 20140305
  Transmission Date: 20141002
  Serious: Yes (Other)
  Sender: FDA-Public Use
  Company Number: US-ABBVIE-13P-163-1115380-00

PATIENT
  Age: 51 Year
  Sex: Female
  Weight: 61.29 kg

DRUGS (11)
  1. HUMIRA [Suspect]
     Indication: RHEUMATOID ARTHRITIS
     Dosage: TAKES IT EVERY 2,3,OR 4 WEEKS
     Dates: start: 2006
  2. METHOTREXATE [Suspect]
     Indication: RHEUMATOID ARTHRITIS
     Dates: start: 2006, end: 2011
  3. TOPAMAX [Concomitant]
     Indication: MIGRAINE
  4. TARKA [Concomitant]
     Indication: HYPERTENSION
  5. LORAZEPAM [Concomitant]
     Indication: ANXIETY
  6. YAZ [Concomitant]
     Indication: CONTRACEPTION
  7. VITAMIN D3 [Concomitant]
     Indication: VITAMIN D DECREASED
  8. FOLIC ACID [Concomitant]
     Indication: PRODUCT USED FOR UNKNOWN INDICATION
  9. TRIAZOLAM [Concomitant]
     Indication: INSOMNIA
  10. ALEVE [Concomitant]
     Indication: PRODUCT USED FOR UNKNOWN INDICATION
     Dosage: PRN
  11. IBUPROFEN [Concomitant]
     Indication: PRODUCT USED FOR UNKNOWN INDICATION
     Dosage: PRN

REACTIONS (4)
  - Basal cell carcinoma [Recovered/Resolved]
  - Basal cell carcinoma [Not Recovered/Not Resolved]
  - Upper respiratory tract infection [Unknown]
  - Asthma [Unknown]
